FAERS Safety Report 25886507 (Version 1)
Quarter: 2025Q4

REPORT INFORMATION
  Report Type: Report from Study
  Country: US (occurrence: US)
  Receive Date: 20251006
  Receipt Date: 20251006
  Transmission Date: 20260117
  Serious: Yes (Other)
  Sender: ALEXION PHARMACEUTICALS
  Company Number: US-AstraZeneca-CH-00961143A

PATIENT
  Sex: Female
  Weight: 24.49 kg

DRUGS (1)
  1. SELUMETINIB [Suspect]
     Active Substance: SELUMETINIB
     Indication: Neurofibromatosis
     Dosage: 20 MILLIGRAM, BID
     Dates: start: 20241115

REACTIONS (2)
  - Haematochezia [Recovering/Resolving]
  - Bacterial infection [Recovering/Resolving]
